FAERS Safety Report 6806736-7 (Version None)
Quarter: 2010Q2

REPORT INFORMATION
  Report Type: 
  Country: None (occurrence: None)
  Receive Date: 20100629
  Receipt Date: 20080508
  Transmission Date: 20101027
  Serious: No
  Sender: FDA-Public Use
  Company Number: US-PFIZER INC-2008036570

PATIENT
  Age: 36 Year
  Sex: Female

DRUGS (42)
  1. XANAX [Suspect]
     Indication: DEPRESSION
     Dates: start: 20020101
  2. XANAX [Suspect]
     Indication: ANXIETY
  3. VISTARIL CAP [Suspect]
     Indication: DEPRESSION
     Dates: start: 20020101
  4. VISTARIL CAP [Suspect]
     Indication: ANXIETY
  5. GEODON [Suspect]
     Indication: DEPRESSION
     Dates: start: 20020101
  6. GEODON [Suspect]
     Indication: ANXIETY
  7. AMITIZA [Concomitant]
  8. GABAPENTIN [Concomitant]
  9. FROVA [Concomitant]
  10. TOPAMAX [Concomitant]
  11. HYDRALAZINE HCL [Concomitant]
  12. LORAZEPAM [Concomitant]
  13. CIPROFLOXACIN [Concomitant]
  14. SERTRALINE HCL [Concomitant]
  15. MOXIFLOXACIN [Concomitant]
  16. MOXIFLOXACIN [Concomitant]
  17. PROMETHAZINE [Concomitant]
  18. PROMETHAZINE [Concomitant]
  19. OMEPRAZOLE [Concomitant]
  20. OMEPRAZOLE [Concomitant]
  21. ESTRACE [Concomitant]
     Indication: VAGINAL DISORDER
  22. ESTRACE [Concomitant]
  23. WELLBUTRIN XL [Concomitant]
  24. WELLBUTRIN XL [Concomitant]
  25. LYRICA [Concomitant]
  26. LYRICA [Concomitant]
  27. METRONIDAZOLE [Concomitant]
  28. METRONIDAZOLE [Concomitant]
  29. ZIAC [Concomitant]
  30. ZIAC [Concomitant]
  31. OPTIVAR [Concomitant]
  32. OPTIVAR [Concomitant]
  33. IBUPROFEN [Concomitant]
  34. IBUPROFEN [Concomitant]
  35. FLEXERIL [Concomitant]
  36. LEVOFLOXACIN [Concomitant]
  37. TOBRADEX [Concomitant]
  38. DOXEPIN HCL [Concomitant]
  39. SIMVASTATIN [Concomitant]
  40. NAPROSYN [Concomitant]
  41. PREMARIN [Concomitant]
  42. PHOLCODINE [Concomitant]

REACTIONS (1)
  - DEPRESSION [None]
